FAERS Safety Report 5896431-3 (Version None)
Quarter: 2008Q3

REPORT INFORMATION
  Report Type: 
  Country: None (occurrence: None)
  Receive Date: 20080924
  Receipt Date: 20070905
  Transmission Date: 20090109
  Serious: Yes (Other)
  Sender: FDA-Public Use
  Company Number: US-BAYER-200711757BWH

PATIENT
  Age: 31 Year
  Sex: Female
  Weight: 57 kg

DRUGS (8)
  1. AVELOX [Suspect]
     Indication: SINUSITIS
     Dosage: TOTAL DAILY DOSE: 400 MG  UNIT DOSE: 400 MG
     Route: 048
     Dates: start: 20070531, end: 20070601
  2. ASMANEX TWISTHALER [Suspect]
     Indication: SINUSITIS
     Route: 045
  3. ASMANEX TWISTHALER [Suspect]
     Route: 045
  4. SYNTHROID [Concomitant]
     Indication: HYPOTHYROIDISM
  5. FLONASE [Concomitant]
  6. ALLEGRA [Concomitant]
  7. FORADIL [Concomitant]
  8. ASMANEX TWISTHALER [Concomitant]

REACTIONS (7)
  - ANAPHYLACTIC REACTION [None]
  - BODY TEMPERATURE DECREASED [None]
  - CHEST DISCOMFORT [None]
  - DYSPNOEA [None]
  - FEELING JITTERY [None]
  - PARAESTHESIA [None]
  - THROAT TIGHTNESS [None]
